FAERS Safety Report 6705056-9 (Version None)
Quarter: 2010Q2

REPORT INFORMATION
  Report Type: 
  Country: None (occurrence: None)
  Receive Date: 20100430
  Receipt Date: 20100427
  Transmission Date: 20101027
  Serious: Yes (Hospitalization)
  Sender: FDA-Public Use
  Company Number: B0650397A

PATIENT
  Age: 89 Year
  Sex: Female

DRUGS (8)
  1. SEPTRIN FORTE [Suspect]
     Route: 048
     Dates: start: 20091125, end: 20091204
  2. DIGOXIN [Suspect]
     Indication: ATRIAL FIBRILLATION
     Dosage: .25MG PER DAY
     Route: 048
     Dates: start: 20090101, end: 20091201
  3. CIPROFLOXACIN [Suspect]
     Dosage: 2G PER DAY
     Route: 048
     Dates: start: 20091125, end: 20091204
  4. AIRTAL [Suspect]
     Dosage: 400MG PER DAY
     Route: 048
     Dates: start: 20091128, end: 20091204
  5. ALOPURINOL [Concomitant]
     Dosage: 100MG PER DAY
     Route: 048
     Dates: start: 19990101
  6. ATACAND [Concomitant]
     Indication: HYPERTENSION
     Dosage: 28TAB CUMULATIVE DOSE
     Route: 065
     Dates: start: 20040101
  7. NORVASC [Concomitant]
     Indication: HYPERTENSION
     Dosage: 30TAB CUMULATIVE DOSE
     Route: 048
     Dates: start: 19940101
  8. SINTROM [Concomitant]
     Indication: ATRIAL FIBRILLATION
     Dosage: 20TAB CUMULATIVE DOSE
     Route: 048
     Dates: start: 19990101, end: 20091201

REACTIONS (4)
  - BRADYCARDIA [None]
  - HYPERKALAEMIA [None]
  - RENAL FAILURE ACUTE [None]
  - THERAPEUTIC AGENT TOXICITY [None]
